FAERS Safety Report 16100799 (Version 1)
Quarter: 2019Q1

REPORT INFORMATION
  Report Type: Spontaneous
  Country: US (occurrence: US)
  Receive Date: 20190321
  Receipt Date: 20190321
  Transmission Date: 20190418
  Serious: No
  Sender: FDA-Public Use
  Company Number: US-AMREGENT-20181118

PATIENT
  Sex: Female

DRUGS (1)
  1. DEXFERRUM [Suspect]
     Active Substance: IRON DEXTRAN
     Dosage: UNKNOWN
     Route: 065

REACTIONS (1)
  - Injection site pain [Unknown]
